FAERS Safety Report 24241953 (Version 1)
Quarter: 2024Q3

REPORT INFORMATION
  Report Type: Spontaneous
  Country: FR (occurrence: FR)
  Receive Date: 20240823
  Receipt Date: 20240823
  Transmission Date: 20241016
  Serious: Yes (Death)
  Sender: MYLAN
  Company Number: None

PATIENT
  Age: 45 Year
  Sex: Male
  Weight: 59 kg

DRUGS (11)
  1. LORAZEPAM [Suspect]
     Active Substance: LORAZEPAM
     Indication: Anxiety
     Dosage: 10 MILLIGRAM, QD
     Route: 048
     Dates: start: 20240326, end: 20240505
  2. CLOZAPINE [Suspect]
     Active Substance: CLOZAPINE
     Indication: Schizophrenia
     Dosage: 700 MILLIGRAM, QD
     Route: 048
     Dates: start: 20240422, end: 20240505
  3. AMITRIPTYLINE HYDROCHLORIDE [Suspect]
     Active Substance: AMITRIPTYLINE HYDROCHLORIDE
     Indication: Insomnia
     Dosage: 50 MILLIGRAM, QD
     Route: 048
     Dates: start: 20240418, end: 20240505
  4. TRIMEPRAZINE [Suspect]
     Active Substance: TRIMEPRAZINE
     Indication: Insomnia
     Dosage: UNK
     Route: 048
     Dates: end: 20240505
  5. VALIUM [Suspect]
     Active Substance: DIAZEPAM
     Indication: Anxiety
     Dosage: UNK
     Route: 042
     Dates: end: 20240505
  6. VALIUM [Suspect]
     Active Substance: DIAZEPAM
     Indication: Anxiety
     Dosage: UNK
     Route: 048
     Dates: end: 20240505
  7. AMISULPRIDE [Suspect]
     Active Substance: AMISULPRIDE
     Indication: Schizophrenia
     Dosage: 1200 MILLIGRAM, QD
     Route: 048
     Dates: start: 20240409, end: 20240505
  8. TROPATEPINE HYDROCHLORIDE [Suspect]
     Active Substance: TROPATEPINE HYDROCHLORIDE
     Indication: Parkinsonism
     Dosage: UNK
     Route: 048
     Dates: end: 20240505
  9. LOXAPINE [Suspect]
     Active Substance: LOXAPINE
     Indication: Schizophrenia
     Dosage: 800 MILLIGRAM, QD
     Route: 048
     Dates: start: 20240201, end: 20240505
  10. NICOTINELL [Suspect]
     Active Substance: NICOTINE
     Indication: Nicotine dependence
     Dosage: UNK
     Route: 060
     Dates: end: 20240505
  11. ATROPINE SULFATE [Suspect]
     Active Substance: ATROPINE SULFATE
     Indication: Salivary hypersecretion
     Dosage: 6 DROPS, QD
     Route: 048
     Dates: start: 20240115, end: 20240505

REACTIONS (2)
  - Choking [Fatal]
  - Overdose [Recovered/Resolved]

NARRATIVE: CASE EVENT DATE: 20240201
